FAERS Safety Report 9236386 (Version 1)
Quarter: 2013Q2

REPORT INFORMATION
  Report Type: Spontaneous
  Country: PE (occurrence: PE)
  Receive Date: 20130417
  Receipt Date: 20130417
  Transmission Date: 20140414
  Serious: Yes (Hospitalization, Other)
  Sender: FDA-Public Use
  Company Number: PE-PFIZER INC-2013117458

PATIENT
  Age: 43 Year
  Sex: Male

DRUGS (1)
  1. EFFEXOR XR [Suspect]
     Route: 048

REACTIONS (2)
  - Nasal septum disorder [Unknown]
  - Gastrooesophageal reflux disease [Unknown]
